FAERS Safety Report 24341930 (Version 1)
Quarter: 2024Q3

REPORT INFORMATION
  Report Type: Report from Study
  Country: US (occurrence: US)
  Receive Date: 20240920
  Receipt Date: 20240920
  Transmission Date: 20241016
  Serious: Yes (Other)
  Sender: ABBVIE
  Company Number: US-ABBVIE-5927038

PATIENT
  Sex: Female

DRUGS (1)
  1. RINVOQ [Suspect]
     Active Substance: UPADACITINIB
     Indication: Dermatitis atopic
     Route: 048
     Dates: start: 20231001

REACTIONS (6)
  - Vitreous floaters [Recovered/Resolved]
  - Large intestine polyp [Recovered/Resolved]
  - Pharyngeal swelling [Recovering/Resolving]
  - Cough [Recovering/Resolving]
  - Vision blurred [Recovered/Resolved]
  - Oropharyngeal pain [Recovering/Resolving]

NARRATIVE: CASE EVENT DATE: 20240101
